FAERS Safety Report 8033208-7 (Version None)
Quarter: 2012Q1

REPORT INFORMATION
  Report Type: 
  Country: None (occurrence: None)
  Receive Date: 20120110
  Receipt Date: 20120106
  Transmission Date: 20120608
  Serious: Yes (Other)
  Sender: FDA-Public Use
  Company Number: CN-SANOFI-AVENTIS-2012SA000739

PATIENT
  Age: 47 Year
  Sex: Female

DRUGS (9)
  1. ELOXATIN [Suspect]
     Dosage: ELOXATIN INFUSION RESTARTED AT A SLOWER RATE
     Route: 041
  2. ELOXATIN [Suspect]
     Dosage: INJECTION THERAPY
     Route: 041
  3. CAPECITABINE [Concomitant]
     Route: 048
  4. DEXTROSE [Concomitant]
     Dosage: 5%
     Route: 042
  5. ELOXATIN [Suspect]
     Route: 041
  6. DEXTROSE [Concomitant]
     Dosage: 5%
     Route: 041
  7. ELOXATIN [Suspect]
     Indication: RECTAL CANCER
     Route: 041
  8. ELOXATIN [Suspect]
     Dosage: DOSE REDUCED
     Route: 041
  9. CAPECITABINE [Concomitant]

REACTIONS (13)
  - LACRIMATION INCREASED [None]
  - FLUSHING [None]
  - PAPULE [None]
  - TYPE IV HYPERSENSITIVITY REACTION [None]
  - HYPERHIDROSIS [None]
  - ABDOMINAL PAIN [None]
  - CHILLS [None]
  - SALIVARY HYPERSECRETION [None]
  - PRURITUS [None]
  - RHINORRHOEA [None]
  - NASOPHARYNGITIS [None]
  - PYREXIA [None]
  - SWELLING [None]
